FAERS Safety Report 9342758 (Version 1)
Quarter: 2013Q2

REPORT INFORMATION
  Report Type: Spontaneous
  Country: CN (occurrence: CN)
  Receive Date: 20130611
  Receipt Date: 20130611
  Transmission Date: 20140414
  Serious: Yes (Hospitalization)
  Sender: FDA-Public Use
  Company Number: CN-BAYER-2013-069051

PATIENT
  Age: 62 Year
  Sex: Female

DRUGS (2)
  1. ACETYLSALICYLIC ACID [Suspect]
     Indication: OROPHARYNGEAL PAIN
     Dosage: 2 DF, UNK
     Route: 048
     Dates: start: 201101
  2. ACETYLSALICYLIC ACID [Suspect]
     Indication: PYREXIA

REACTIONS (5)
  - Autoantibody positive [Recovered/Resolved]
  - Asthenia [Recovered/Resolved]
  - Chromaturia [Recovered/Resolved]
  - Jaundice [Recovered/Resolved]
  - Drug-induced liver injury [Recovered/Resolved]
